FAERS Safety Report 7396008-7 (Version None)
Quarter: 2011Q2

REPORT INFORMATION
  Report Type: 
  Country: None (occurrence: None)
  Receive Date: 20110406
  Receipt Date: 20110329
  Transmission Date: 20111010
  Serious: Yes (Hospitalization)
  Sender: FDA-Public Use
  Company Number: GB-RANBAXY-2011R1-43377

PATIENT
  Age: 30 Year
  Sex: Female

DRUGS (2)
  1. AMPICILLIN SODIUM/SULBACTAM SODIUM [Suspect]
     Indication: CHOLECYSTITIS
     Dosage: UNK
     Route: 042
     Dates: start: 20110316, end: 20110316
  2. ENOXAPARIN [Concomitant]
     Indication: PULMONARY EMBOLISM
     Dosage: UNK
     Route: 065

REACTIONS (2)
  - THROAT TIGHTNESS [None]
  - ERYTHEMA [None]
